FAERS Safety Report 5080552-1 (Version None)
Quarter: 2006Q3

REPORT INFORMATION
  Report Type: 
  Country: None (occurrence: None)
  Receive Date: 20060809
  Receipt Date: 20060724
  Transmission Date: 20061208
  Serious: Yes (Hospitalization, Other)
  Sender: FDA-Public Use
  Company Number: 2006AL001964

PATIENT
  Age: 22 Year
  Sex: Female

DRUGS (4)
  1. LIDOCAINE 2 % VISCOUS, ORAL, TOPICAL (LIDOCAINE HYDROCHLORIDE) [Suspect]
     Indication: CAESAREAN SECTION
     Dates: start: 20060124, end: 20060124
  2. FENTANYL [Concomitant]
  3. PENTREXYL [Concomitant]
  4. METRONIDAZOLE [Concomitant]

REACTIONS (4)
  - CAESAREAN SECTION [None]
  - DRUG EXPOSURE DURING PREGNANCY [None]
  - OXYGEN SATURATION DECREASED [None]
  - PROCEDURAL HYPOTENSION [None]
